FAERS Safety Report 7335852-9 (Version None)
Quarter: 2011Q1

REPORT INFORMATION
  Report Type: 
  Country: None (occurrence: None)
  Receive Date: 20110307
  Receipt Date: 20110228
  Transmission Date: 20110831
  Serious: Yes (Hospitalization)
  Sender: FDA-Public Use
  Company Number: US-GENZYME-CLOF-1001378

PATIENT
  Sex: Female
  Weight: 91.791 kg

DRUGS (10)
  1. VALTREX [Concomitant]
     Indication: PRODUCT USED FOR UNKNOWN INDICATION
     Dosage: 500 MG, QD
     Route: 065
     Dates: start: 20101202
  2. CLOFARABINE [Suspect]
     Indication: ACUTE MYELOID LEUKAEMIA
     Dosage: 40 MG, ONCE
     Route: 048
     Dates: start: 20110104, end: 20110104
  3. CLOLAR [Suspect]
     Indication: ACUTE MYELOID LEUKAEMIA
     Dosage: 20 MG, ONCE
     Route: 042
     Dates: start: 20110103, end: 20110103
  4. VFEND [Concomitant]
     Indication: PRODUCT USED FOR UNKNOWN INDICATION
     Dosage: 200 MG, BID
     Route: 065
     Dates: start: 20101202
  5. CLOLAR [Suspect]
     Dosage: 20 MG, ONCE
     Route: 042
     Dates: start: 20110107, end: 20110107
  6. CIPROFLOXACIN [Concomitant]
     Indication: PRODUCT USED FOR UNKNOWN INDICATION
     Dosage: 500 MG, BID
     Route: 065
     Dates: start: 20101202
  7. METOPROLOL [Concomitant]
     Indication: HYPERTENSION
     Dosage: 50 MG, BID
     Route: 065
     Dates: start: 20101202
  8. CLOFARABINE [Suspect]
     Dosage: 40 MG, ONCE
     Route: 048
     Dates: start: 20110108, end: 20110108
  9. CLOFARABINE [Suspect]
     Dosage: 40 MG, ONCE
     Route: 048
     Dates: start: 20110109, end: 20110109
  10. AMLODIPINE [Concomitant]
     Indication: HYPERTENSION
     Dosage: 10 MG, QD
     Route: 065
     Dates: start: 20101202

REACTIONS (3)
  - DEVICE RELATED INFECTION [None]
  - TUMOUR LYSIS SYNDROME [None]
  - NEUTROPENIA [None]
